FAERS Safety Report 8902330 (Version 1)
Quarter: 2012Q4

REPORT INFORMATION
  Report Type: 
  Country: NL (occurrence: NL)
  Receive Date: 20121112
  Receipt Date: 20121112
  Transmission Date: 20130627
  Serious: Yes (Other)
  Sender: FDA-Public Use
  Company Number: NL-PFIZER INC-2012276012

PATIENT
  Sex: Male

DRUGS (6)
  1. TOVIAZ [Suspect]
     Dosage: 4 mg, UNK
  2. DOXAZOSIN [Concomitant]
     Dosage: 4 mg, UNK
  3. ESOMEPRAZOLE [Concomitant]
  4. QUINAPRIL [Concomitant]
     Dosage: 40 mg, UNK
  5. GALANTAMINE [Concomitant]
     Dosage: 24 mg, UNK
  6. LERDIP [Concomitant]
     Dosage: 10 mg, UNK

REACTIONS (9)
  - Confusional state [Unknown]
  - Somnolence [Unknown]
  - Dry mouth [Unknown]
  - Dry eye [Unknown]
  - Constipation [Unknown]
  - Dizziness [Unknown]
  - Flatulence [Unknown]
  - Palpitations [Unknown]
  - Vision blurred [Unknown]
